FAERS Safety Report 4369477-4 (Version None)
Quarter: 2004Q2

REPORT INFORMATION
  Report Type: 
  Country: None (occurrence: None)
  Receive Date: 20040527
  Receipt Date: 20040513
  Transmission Date: 20050107
  Serious: No
  Sender: FDA-Public Use
  Company Number: 2004UW07284

PATIENT
  Age: 64 Year
  Sex: Female
  Weight: 82.1011 kg

DRUGS (11)
  1. CRESTOR [Suspect]
     Indication: HYPERLIPIDAEMIA
     Dosage: 10 MG QD PO
     Route: 048
     Dates: start: 20040119, end: 20040412
  2. LITHIUM CARBONATE [Suspect]
     Indication: BIPOLAR DISORDER
     Dosage: 300 MG BID PO
     Route: 048
  3. LITHIUM CARBONATE [Suspect]
     Indication: BIPOLAR DISORDER
     Dosage: 300 MG QD PO
     Route: 048
     Dates: start: 20040414
  4. LITHIUM CARBONATE [Suspect]
     Indication: BIPOLAR DISORDER
     Dosage: 300 MG BID PO
     Route: 048
     Dates: start: 20040419
  5. FOSAMAX [Concomitant]
  6. GLYBURIDE [Concomitant]
  7. PREMARIN [Concomitant]
  8. HYDROCHLOROTHIAZIDE [Concomitant]
  9. DILTIAZEM [Concomitant]
  10. GEMFIBROZIL [Concomitant]
  11. LISINOPRIL [Concomitant]

REACTIONS (4)
  - NAUSEA [None]
  - THERAPEUTIC AGENT TOXICITY [None]
  - TREMOR [None]
  - VOMITING [None]
